FAERS Safety Report 7424656-4 (Version None)
Quarter: 2011Q2

REPORT INFORMATION
  Report Type: 
  Country: None (occurrence: None)
  Receive Date: 20110419
  Receipt Date: 20090219
  Transmission Date: 20111010
  Serious: Yes (Death, Hospitalization, Other)
  Sender: FDA-Public Use
  Company Number: US-BAYER-200913498NA

PATIENT
  Age: 73 Year
  Sex: Male
  Weight: 74.83 kg

DRUGS (14)
  1. PROTAMINE SULFATE [Concomitant]
     Dosage: UNK
     Route: 042
     Dates: start: 20040225
  2. ZINACEF [Concomitant]
     Dosage: 1.5 G, UNK
     Route: 042
     Dates: start: 20040225
  3. SUFENTANIL [Concomitant]
     Dosage: UNK
     Route: 042
     Dates: start: 20040225
  4. DOBUTAMINE HCL [Concomitant]
     Dosage: UNK
     Dates: start: 20040225
  5. DYAZIDE [Concomitant]
     Dosage: 1 TAB
     Route: 048
  6. ACETYLSALICYLIC ACID SRT [Suspect]
     Indication: PRODUCT USED FOR UNKNOWN INDICATION
     Dosage: UNK
     Dates: end: 20040417
  7. PRILOSEC [Concomitant]
     Dosage: 1 TAB
     Route: 048
  8. LIDOCAINE [Concomitant]
     Dosage: UNK
     Route: 042
     Dates: start: 20040225
  9. TRASYLOL [Suspect]
     Indication: CORONARY ARTERY BYPASS
     Dosage: UNK
     Route: 042
     Dates: start: 20040225, end: 20040225
  10. PAPAVERIN [Concomitant]
     Dosage: UNK
     Dates: start: 20040225
  11. HEPARIN [Concomitant]
     Dosage: UNK
     Route: 042
     Dates: start: 20040225
  12. SODIUM BICARBONATE [Concomitant]
     Dosage: UNK
     Route: 042
     Dates: start: 20040225
  13. TRANDATE [Concomitant]
     Dosage: 20 MG, UNK
     Route: 048
  14. VANCOMYCIN [Concomitant]
     Dosage: 1 UNK, UNK
     Route: 042
     Dates: start: 20040225

REACTIONS (14)
  - INJURY [None]
  - LARGE INTESTINAL HAEMORRHAGE [None]
  - STRESS [None]
  - PAIN [None]
  - RENAL INJURY [None]
  - DEATH [None]
  - EMOTIONAL DISTRESS [None]
  - FEAR [None]
  - MULTI-ORGAN FAILURE [None]
  - ANXIETY [None]
  - UNEVALUABLE EVENT [None]
  - ANHEDONIA [None]
  - RENAL FAILURE [None]
  - RENAL IMPAIRMENT [None]
